FAERS Safety Report 8902030 (Version 2)
Quarter: 2012Q4

REPORT INFORMATION
  Report Type: 
  Country: AU (occurrence: AU)
  Receive Date: 20121112
  Receipt Date: 20121123
  Transmission Date: 20130627
  Serious: Yes (Hospitalization, Other)
  Sender: FDA-Public Use
  Company Number: PHHY2012AU102940

PATIENT
  Sex: Female

DRUGS (2)
  1. GILENYA [Suspect]
     Dosage: UNK
     Route: 048
     Dates: start: 20121102, end: 20121108
  2. UNSPECIFIED INGREDIENT [Suspect]

REACTIONS (10)
  - Meningitis viral [Unknown]
  - Meningism [Unknown]
  - Pyrexia [Recovered/Resolved]
  - Eye pain [Unknown]
  - Malaise [Unknown]
  - Rash [Recovered/Resolved]
  - Lymphocyte count decreased [Unknown]
  - Neutropenia [Unknown]
  - Pancytopenia [Recovered/Resolved]
  - Vaccination error [Unknown]
